FAERS Safety Report 5350920-9 (Version None)
Quarter: 2007Q2

REPORT INFORMATION
  Report Type: 
  Country: None (occurrence: None)
  Receive Date: 20070608
  Receipt Date: 20070531
  Transmission Date: 20071010
  Serious: No
  Sender: FDA-Public Use
  Company Number: US-ASTRAZENECA-2006UW10738

PATIENT
  Age: 466 Month
  Sex: Male
  Weight: 138.6 kg

DRUGS (6)
  1. SEROQUEL [Suspect]
     Route: 048
     Dates: start: 20041001, end: 20060301
  2. OXYGEN [Concomitant]
     Route: 045
  3. ZIPRASIDONE [Concomitant]
     Dates: start: 20060214
  4. OLANZAPINE [Concomitant]
  5. CANNABIS SATIVA [Concomitant]
  6. COCAINE [Concomitant]

REACTIONS (2)
  - CHRONIC OBSTRUCTIVE PULMONARY DISEASE [None]
  - DIABETES MELLITUS [None]
